FAERS Safety Report 15623798 (Version 1)
Quarter: 2018Q4

REPORT INFORMATION
  Report Type: Spontaneous
  Country: US (occurrence: US)
  Receive Date: 20181115
  Receipt Date: 20181115
  Transmission Date: 20190205
  Serious: No
  Sender: FDA-Public Use
  Company Number: US-BRISTOL-MYERS SQUIBB COMPANY-BMS-2018-105449

PATIENT
  Age: 59 Year
  Sex: Male

DRUGS (1)
  1. KENALOG-40 [Suspect]
     Active Substance: TRIAMCINOLONE ACETONIDE
     Indication: RHINITIS ALLERGIC
     Dosage: 1 DF, QD
     Route: 045

REACTIONS (4)
  - Rhinalgia [Unknown]
  - Product use issue [Unknown]
  - Rhinorrhoea [Recovered/Resolved]
  - Nasal oedema [Unknown]
